FAERS Safety Report 4786069-3 (Version None)
Quarter: 2005Q4

REPORT INFORMATION
  Report Type: 
  Country: None (occurrence: None)
  Receive Date: 20051003
  Receipt Date: 20051003
  Transmission Date: 20060501
  Serious: Yes (Hospitalization, Other)
  Sender: FDA-Public Use
  Company Number: None

PATIENT
  Sex: Male
  Weight: 81.8 kg

DRUGS (3)
  1. CISPLATIN [Suspect]
     Indication: SQUAMOUS CELL CARCINOMA
     Dosage: SEE IMAGE
     Dates: start: 20050912, end: 20050916
  2. PACLITAXEL [Suspect]
     Dosage: SEE IMAGE
     Route: 042
     Dates: start: 20050912, end: 20050916
  3. RADIATION [Suspect]
     Dosage: SEE IMAGE
     Dates: start: 20050912

REACTIONS (4)
  - DEHYDRATION [None]
  - NAUSEA [None]
  - NEUTROPENIA [None]
  - VOMITING [None]
